FAERS Safety Report 25552486 (Version 2)
Quarter: 2025Q3

REPORT INFORMATION
  Report Type: Report from Study
  Country: US (occurrence: US)
  Receive Date: 20250715
  Receipt Date: 20250729
  Transmission Date: 20251021
  Serious: Yes (Hospitalization)
  Sender: ABBVIE
  Company Number: US-ABBVIE-6366867

PATIENT
  Age: 62 Year
  Sex: Female

DRUGS (3)
  1. HUMIRA [Suspect]
     Active Substance: ADALIMUMAB
     Indication: Rheumatoid arthritis
     Dosage: FORM STRENGTH: 40 MILLIGRAM
     Route: 058
     Dates: start: 202405, end: 20250524
  2. PREDNISONE [Concomitant]
     Active Substance: PREDNISONE
     Indication: Product used for unknown indication
     Dates: start: 20250619
  3. METHOTREXATE [Suspect]
     Active Substance: METHOTREXATE
     Indication: Product used for unknown indication
     Route: 065

REACTIONS (14)
  - Toxicity to various agents [Recovering/Resolving]
  - Haemoglobin decreased [Not Recovered/Not Resolved]
  - Dysphagia [Recovering/Resolving]
  - Oral pain [Recovering/Resolving]
  - Vomiting [Unknown]
  - Mouth haemorrhage [Recovering/Resolving]
  - Full blood count decreased [Recovering/Resolving]
  - Oral herpes [Recovering/Resolving]
  - Blood iron decreased [Not Recovered/Not Resolved]
  - Oral mucosal blistering [Recovering/Resolving]
  - Oral mucosal erythema [Recovering/Resolving]
  - Immunodeficiency [Unknown]
  - Oropharyngeal pain [Recovering/Resolving]
  - Oral discomfort [Recovering/Resolving]

NARRATIVE: CASE EVENT DATE: 20250101
